FAERS Safety Report 7486374-6 (Version None)
Quarter: 2011Q2

REPORT INFORMATION
  Report Type: 
  Country: None (occurrence: None)
  Receive Date: 20110517
  Receipt Date: 20110513
  Transmission Date: 20111010
  Serious: Yes (Other)
  Sender: FDA-Public Use
  Company Number: US-PFIZER INC-2011100592

PATIENT
  Sex: Female
  Weight: 91 kg

DRUGS (1)
  1. PROTONIX [Suspect]
     Indication: GASTROOESOPHAGEAL REFLUX DISEASE
     Dosage: 40 MG, 1X/DAY
     Route: 048
     Dates: end: 20110509

REACTIONS (3)
  - THERAPEUTIC RESPONSE UNEXPECTED [None]
  - ROAD TRAFFIC ACCIDENT [None]
  - DEPRESSION [None]
